FAERS Safety Report 4738926-1 (Version None)
Quarter: 2005Q3

REPORT INFORMATION
  Report Type: 
  Country: None (occurrence: None)
  Receive Date: 20050801
  Receipt Date: 20050322
  Transmission Date: 20060218
  Serious: Yes (Hospitalization)
  Sender: FDA-Public Use
  Company Number: 213331

PATIENT
  Age: 20 Year
  Sex: Female

DRUGS (5)
  1. RITUXAN [Suspect]
     Indication: SYSTEMIC LUPUS ERYTHEMATOSUS
     Dates: start: 20050311
  2. METHOTREXATE [Concomitant]
  3. PREDNISONE [Concomitant]
  4. QUINACRINE (QUINACRINE HYDROCHLORIDE) [Concomitant]
  5. CHLOROQUINE PHOSPHATE [Concomitant]

REACTIONS (3)
  - CHEST PAIN [None]
  - CHILLS [None]
  - PYREXIA [None]
